FAERS Safety Report 8775513 (Version 1)
Quarter: 2012Q4

REPORT INFORMATION
  Report Type: 
  Country: JP (occurrence: JP)
  Receive Date: 20120911
  Receipt Date: 20120911
  Transmission Date: 20130627
  Serious: Yes (Hospitalization)
  Sender: FDA-Public Use
  Company Number: JP-ROCHE-1104654

PATIENT
  Age: 78 Year
  Sex: Male

DRUGS (3)
  1. ACTEMRA [Suspect]
     Indication: RHEUMATOID ARTHRITIS
     Route: 041
     Dates: start: 20120711, end: 20120711
  2. PREDNISOLONE [Concomitant]
     Route: 048
     Dates: start: 20100118
  3. RHEUMATREX [Concomitant]
     Route: 048
     Dates: start: 20100118

REACTIONS (2)
  - Atelectasis [Unknown]
  - Lung neoplasm malignant [Unknown]
